FAERS Safety Report 6038885-8 (Version None)
Quarter: 2009Q1

REPORT INFORMATION
  Report Type: 
  Country: None (occurrence: None)
  Receive Date: 20090115
  Receipt Date: 20081112
  Transmission Date: 20090719
  Serious: No
  Sender: FDA-Public Use
  Company Number: US-ABBOTT-08P-163-0486972-00

PATIENT
  Sex: Male
  Weight: 61.29 kg

DRUGS (2)
  1. ADVICOR [Suspect]
     Indication: BLOOD CHOLESTEROL
     Dosage: 500/20 MG DAILY
     Dates: start: 20070101, end: 20081001
  2. ADVICOR [Suspect]
     Indication: LOW DENSITY LIPOPROTEIN DECREASED
     Dosage: 500/20MG DAILY
     Route: 048
     Dates: start: 20081010

REACTIONS (1)
  - PRURITUS [None]
